FAERS Safety Report 4685544-X (Version None)
Quarter: 2005Q2

REPORT INFORMATION
  Report Type: 
  Country: None (occurrence: None)
  Receive Date: 20050608
  Receipt Date: 20050531
  Transmission Date: 20051028
  Serious: Yes (Hospitalization)
  Sender: FDA-Public Use
  Company Number: 2005CG01018

PATIENT
  Age: 25 Year
  Sex: Male
  Weight: 69 kg

DRUGS (4)
  1. NEXIUM [Suspect]
     Indication: GASTRODUODENAL ULCER
     Route: 048
     Dates: start: 20050411
  2. BIPROFENID [Suspect]
     Indication: TORTICOLLIS
     Route: 048
     Dates: start: 20050411
  3. CORTANCYL [Concomitant]
  4. IXPRIM [Concomitant]

REACTIONS (1)
  - RENAL FAILURE ACUTE [None]
